FAERS Safety Report 22300529 (Version 3)
Quarter: 2023Q2

REPORT INFORMATION
  Report Type: Report from Study
  Country: US (occurrence: None)
  Receive Date: 20230509
  Receipt Date: 20230629
  Transmission Date: 20230722
  Serious: Yes (Other)
  Sender: FDA-Public Use
  Company Number: US-ROCHE-3344134

PATIENT
  Age: 69 Year
  Sex: Male
  Weight: 128.3 kg

DRUGS (5)
  1. ATEZOLIZUMAB [Suspect]
     Active Substance: ATEZOLIZUMAB
     Indication: Renal cell carcinoma
     Dosage: LAST DOSE DATE: 18/APR/2023
     Route: 041
     Dates: start: 20220830
  2. BEVACIZUMAB [Suspect]
     Active Substance: BEVACIZUMAB
     Indication: Renal cell carcinoma
     Dosage: LAST DOSE ON 28//APR/2023
     Route: 042
     Dates: start: 20220830
  3. ENTINOSTAT [Suspect]
     Active Substance: ENTINOSTAT
     Indication: Renal cell carcinoma
     Dosage: LAST DOSE IN APR/2023
     Route: 048
     Dates: start: 20220830
  4. LOSARTAN [Concomitant]
     Active Substance: LOSARTAN
  5. K PHOS NEUTRAL [Concomitant]
     Active Substance: POTASSIUM PHOSPHATE, MONOBASIC\SODIUM PHOSPHATE, DIBASIC, ANHYDROUS\SODIUM PHOSPHATE, MONOBASIC, MON
     Indication: Hypophosphataemia
     Route: 048
     Dates: start: 20221011

REACTIONS (1)
  - Retinal detachment [Not Recovered/Not Resolved]

NARRATIVE: CASE EVENT DATE: 20230501
